FAERS Safety Report 9195211 (Version 1)
Quarter: 2013Q1

REPORT INFORMATION
  Report Type: Spontaneous
  Country: US (occurrence: US)
  Receive Date: 20130328
  Receipt Date: 20130328
  Transmission Date: 20140127
  Serious: No
  Sender: FDA-Public Use
  Company Number: US-ALLERGAN-1204798US

PATIENT
  Age: 70 Year
  Sex: Female

DRUGS (1)
  1. LUMIGAN [Suspect]
     Indication: INTRAOCULAR PRESSURE TEST
     Dosage: 2 GTT, QHS
     Route: 047
     Dates: start: 2007

REACTIONS (2)
  - Diplopia [Unknown]
  - Visual impairment [Unknown]
